FAERS Safety Report 10014986 (Version 1)
Quarter: 2014Q1

REPORT INFORMATION
  Report Type: Spontaneous
  Country: US (occurrence: US)
  Receive Date: 20140317
  Receipt Date: 20140317
  Transmission Date: 20141002
  Serious: No
  Sender: FDA-Public Use
  Company Number: US-009507513-1403USA006420

PATIENT
  Sex: Female

DRUGS (3)
  1. REMERON [Suspect]
     Dosage: UNK
     Route: 048
  2. DEPAKOTE [Concomitant]
     Dosage: UNK
  3. KLONOPIN [Concomitant]
     Dosage: UNK

REACTIONS (1)
  - Barbiturates positive [Unknown]
